FAERS Safety Report 6328627-0 (Version None)
Quarter: 2009Q3

REPORT INFORMATION
  Report Type: 
  Country: None (occurrence: None)
  Receive Date: 20090824
  Receipt Date: 20090824
  Transmission Date: 20100115
  Serious: Yes (Hospitalization)
  Sender: FDA-Public Use
  Company Number: None

PATIENT
  Age: 46 Year
  Sex: Male
  Weight: 71.5 kg

DRUGS (1)
  1. CETUXIMAB 250MG/M2 [Suspect]
     Dosage: 380MG IV
     Route: 042
     Dates: start: 20090608

REACTIONS (1)
  - PRODUCTIVE COUGH [None]
